FAERS Safety Report 20827365 (Version 1)
Quarter: 2022Q2

REPORT INFORMATION
  Report Type: Spontaneous
  Country: US (occurrence: None)
  Receive Date: 20220513
  Receipt Date: 20220513
  Transmission Date: 20220721
  Serious: Yes (Life-Threatening, Hospitalization)
  Sender: FDA-Public Use
  Company Number: None

PATIENT
  Age: 8 Year
  Sex: Female
  Weight: 8.16 kg

DRUGS (3)
  1. IMATINIB [Suspect]
     Active Substance: IMATINIB
     Indication: Giant cell epulis
     Dosage: FREQUENCY : DAILY;?
     Route: 048
     Dates: start: 20220227, end: 20220307
  2. ONDANSETRON [Concomitant]
     Active Substance: ONDANSETRON
  3. FOCALIN [Concomitant]
     Active Substance: DEXMETHYLPHENIDATE HYDROCHLORIDE

REACTIONS (5)
  - Heart rate increased [None]
  - Dyspnoea [None]
  - Pericardial effusion [None]
  - Cardiac tamponade [None]
  - Pleural effusion [None]

NARRATIVE: CASE EVENT DATE: 20220307
